FAERS Safety Report 18682280 (Version 3)
Quarter: 2021Q3

REPORT INFORMATION
  Report Type: Report from Study
  Country: JP (occurrence: JP)
  Receive Date: 20201230
  Receipt Date: 20210906
  Transmission Date: 20211014
  Serious: Yes (Hospitalization, Other)
  Sender: FDA-Public Use
  Company Number: JP-JNJFOC-20200300903

PATIENT
  Age: 69 Year
  Sex: Female
  Weight: 34.2 kg

DRUGS (56)
  1. DARATUMUMAB [Suspect]
     Active Substance: DARATUMUMAB
     Route: 041
     Dates: start: 20180307, end: 20180307
  2. DARATUMUMAB [Suspect]
     Active Substance: DARATUMUMAB
     Route: 041
     Dates: start: 20180515, end: 20180515
  3. DARATUMUMAB [Suspect]
     Active Substance: DARATUMUMAB
     Route: 041
     Dates: start: 20180620, end: 20180620
  4. DARATUMUMAB [Suspect]
     Active Substance: DARATUMUMAB
     Route: 041
     Dates: start: 20181107, end: 20181107
  5. LENALIDOMIDE HYDRATE [Concomitant]
     Active Substance: LENALIDOMIDE
     Indication: PLASMA CELL MYELOMA
     Route: 048
     Dates: start: 20180515, end: 20180529
  6. LENALIDOMIDE HYDRATE [Concomitant]
     Active Substance: LENALIDOMIDE
     Indication: PLASMA CELL MYELOMA
     Route: 048
     Dates: start: 20180725, end: 20180814
  7. DEXAMETHASONE. [Concomitant]
     Active Substance: DEXAMETHASONE
     Indication: PLASMA CELL MYELOMA
     Route: 065
     Dates: start: 20180130, end: 20180131
  8. DEXAMETHASONE. [Concomitant]
     Active Substance: DEXAMETHASONE
     Indication: PLASMA CELL MYELOMA
     Route: 065
     Dates: start: 20181107, end: 20181107
  9. NESP [Concomitant]
     Active Substance: DARBEPOETIN ALFA
     Indication: MYELODYSPLASTIC SYNDROME
     Route: 065
     Dates: start: 20190125, end: 20190125
  10. NESP [Concomitant]
     Active Substance: DARBEPOETIN ALFA
     Indication: MYELODYSPLASTIC SYNDROME
     Route: 065
     Dates: start: 20190510, end: 20191001
  11. DARATUMUMAB [Suspect]
     Active Substance: DARATUMUMAB
     Route: 041
     Dates: start: 20180425, end: 20180425
  12. DARATUMUMAB [Suspect]
     Active Substance: DARATUMUMAB
     Route: 041
     Dates: start: 20180808, end: 20180808
  13. DARATUMUMAB [Suspect]
     Active Substance: DARATUMUMAB
     Route: 041
     Dates: start: 20181010, end: 20181010
  14. DEXAMETHASONE. [Concomitant]
     Active Substance: DEXAMETHASONE
     Indication: PLASMA CELL MYELOMA
     Route: 065
     Dates: start: 20180116, end: 20180117
  15. DEXAMETHASONE. [Concomitant]
     Active Substance: DEXAMETHASONE
     Indication: PLASMA CELL MYELOMA
     Route: 065
     Dates: start: 20180307, end: 20180307
  16. DEXAMETHASONE. [Concomitant]
     Active Substance: DEXAMETHASONE
     Indication: PLASMA CELL MYELOMA
     Route: 065
     Dates: start: 20180411, end: 20180411
  17. RANMARK [Concomitant]
     Active Substance: DENOSUMAB
     Indication: PLASMA CELL MYELOMA
     Dosage: UNKNOWN
     Route: 058
     Dates: start: 20170925, end: 20181205
  18. CEFTRIAXONE SODIUM. [Concomitant]
     Active Substance: CEFTRIAXONE SODIUM
     Indication: ENTEROCOLITIS
     Route: 065
     Dates: start: 20180120, end: 20180127
  19. VIDAZA [Concomitant]
     Active Substance: AZACITIDINE
     Indication: MYELODYSPLASTIC SYNDROME
     Dosage: 42?43MG
     Route: 065
     Dates: start: 20190205, end: 20190706
  20. DARATUMUMAB [Suspect]
     Active Substance: DARATUMUMAB
     Route: 041
     Dates: start: 20180130, end: 20180130
  21. DARATUMUMAB [Suspect]
     Active Substance: DARATUMUMAB
     Route: 041
     Dates: start: 20180314, end: 20180314
  22. DARATUMUMAB [Suspect]
     Active Substance: DARATUMUMAB
     Route: 041
     Dates: start: 20180411, end: 20180411
  23. DARATUMUMAB [Suspect]
     Active Substance: DARATUMUMAB
     Route: 041
     Dates: start: 20180529, end: 20180529
  24. DEXAMETHASONE. [Concomitant]
     Active Substance: DEXAMETHASONE
     Indication: PLASMA CELL MYELOMA
     Route: 065
     Dates: start: 20180529, end: 20180529
  25. DEXAMETHASONE. [Concomitant]
     Active Substance: DEXAMETHASONE
     Indication: PLASMA CELL MYELOMA
     Route: 065
     Dates: start: 20180620, end: 20180620
  26. DARATUMUMAB [Suspect]
     Active Substance: DARATUMUMAB
     Route: 041
     Dates: start: 20180206, end: 20180206
  27. DARATUMUMAB [Suspect]
     Active Substance: DARATUMUMAB
     Route: 041
     Dates: start: 20180228, end: 20180228
  28. DARATUMUMAB [Suspect]
     Active Substance: DARATUMUMAB
     Route: 041
     Dates: start: 20180905, end: 20180905
  29. LENALIDOMIDE HYDRATE [Concomitant]
     Active Substance: LENALIDOMIDE
     Indication: PLASMA CELL MYELOMA
     Route: 048
     Dates: start: 20180130, end: 20180212
  30. LENALIDOMIDE HYDRATE [Concomitant]
     Active Substance: LENALIDOMIDE
     Indication: PLASMA CELL MYELOMA
     Route: 048
     Dates: start: 20180228, end: 20180313
  31. DEXAMETHASONE. [Concomitant]
     Active Substance: DEXAMETHASONE
     Indication: PLASMA CELL MYELOMA
     Route: 065
     Dates: start: 20180704, end: 20180704
  32. DEXAMETHASONE. [Concomitant]
     Active Substance: DEXAMETHASONE
     Indication: PLASMA CELL MYELOMA
     Route: 065
     Dates: start: 20180725, end: 20180725
  33. DEXAMETHASONE. [Concomitant]
     Active Substance: DEXAMETHASONE
     Indication: PLASMA CELL MYELOMA
     Route: 065
     Dates: start: 20180808, end: 20180808
  34. DARATUMUMAB [Suspect]
     Active Substance: DARATUMUMAB
     Route: 041
     Dates: start: 20180123, end: 20180123
  35. DARATUMUMAB [Suspect]
     Active Substance: DARATUMUMAB
     Route: 041
     Dates: start: 20180321, end: 20180321
  36. LENALIDOMIDE HYDRATE [Concomitant]
     Active Substance: LENALIDOMIDE
     Indication: PLASMA CELL MYELOMA
     Route: 048
     Dates: start: 20180411, end: 20180417
  37. LENALIDOMIDE HYDRATE [Concomitant]
     Active Substance: LENALIDOMIDE
     Indication: PLASMA CELL MYELOMA
     Route: 048
     Dates: start: 20180704, end: 20180710
  38. LENALIDOMIDE HYDRATE [Concomitant]
     Active Substance: LENALIDOMIDE
     Indication: PLASMA CELL MYELOMA
     Route: 048
     Dates: start: 20180905, end: 20180918
  39. LENALIDOMIDE HYDRATE [Concomitant]
     Active Substance: LENALIDOMIDE
     Indication: PLASMA CELL MYELOMA
     Route: 048
     Dates: start: 20181010, end: 20181016
  40. LENALIDOMIDE HYDRATE [Concomitant]
     Active Substance: LENALIDOMIDE
     Indication: PLASMA CELL MYELOMA
     Route: 048
     Dates: start: 20181107, end: 20181113
  41. DEXAMETHASONE. [Concomitant]
     Active Substance: DEXAMETHASONE
     Indication: PLASMA CELL MYELOMA
     Route: 065
     Dates: start: 20180228, end: 20180228
  42. DEXAMETHASONE. [Concomitant]
     Active Substance: DEXAMETHASONE
     Indication: PLASMA CELL MYELOMA
     Route: 065
     Dates: start: 20180905, end: 20180905
  43. DEXAMETHASONE. [Concomitant]
     Active Substance: DEXAMETHASONE
     Indication: PLASMA CELL MYELOMA
     Route: 065
     Dates: start: 20181010, end: 20181010
  44. DARATUMUMAB [Suspect]
     Active Substance: DARATUMUMAB
     Route: 041
     Dates: start: 20181204, end: 20181204
  45. LENALIDOMIDE HYDRATE [Concomitant]
     Active Substance: LENALIDOMIDE
     Indication: PLASMA CELL MYELOMA
     Route: 048
     Dates: start: 20180620, end: 20180702
  46. DEXAMETHASONE. [Concomitant]
     Active Substance: DEXAMETHASONE
     Indication: PLASMA CELL MYELOMA
     Route: 065
     Dates: start: 20180206, end: 20180207
  47. DEXAMETHASONE. [Concomitant]
     Active Substance: DEXAMETHASONE
     Indication: PLASMA CELL MYELOMA
     Route: 065
     Dates: start: 20180425, end: 20180425
  48. CEFTRIAXONE SODIUM. [Concomitant]
     Active Substance: CEFTRIAXONE SODIUM
     Indication: ENTEROCOLITIS
     Route: 065
     Dates: start: 20180109, end: 20180112
  49. DARATUMUMAB [Suspect]
     Active Substance: DARATUMUMAB
     Indication: PLASMA CELL MYELOMA
     Route: 041
     Dates: start: 20180116, end: 20180116
  50. DARATUMUMAB [Suspect]
     Active Substance: DARATUMUMAB
     Route: 041
     Dates: start: 20180704, end: 20180704
  51. DARATUMUMAB [Suspect]
     Active Substance: DARATUMUMAB
     Route: 041
     Dates: start: 20180725, end: 20180725
  52. LENALIDOMIDE HYDRATE [Concomitant]
     Active Substance: LENALIDOMIDE
     Indication: PLASMA CELL MYELOMA
     Route: 048
     Dates: start: 20180116, end: 20180122
  53. LENALIDOMIDE HYDRATE [Concomitant]
     Active Substance: LENALIDOMIDE
     Indication: PLASMA CELL MYELOMA
     Route: 048
     Dates: start: 20180420, end: 20180503
  54. LENALIDOMIDE HYDRATE [Concomitant]
     Active Substance: LENALIDOMIDE
     Indication: PLASMA CELL MYELOMA
     Route: 048
     Dates: start: 20181204, end: 20181210
  55. DEXAMETHASONE. [Concomitant]
     Active Substance: DEXAMETHASONE
     Indication: PLASMA CELL MYELOMA
     Route: 065
     Dates: start: 20180515, end: 20180515
  56. DEXAMETHASONE. [Concomitant]
     Active Substance: DEXAMETHASONE
     Indication: PLASMA CELL MYELOMA
     Route: 065
     Dates: start: 20181204, end: 20181204

REACTIONS (3)
  - C-reactive protein increased [Recovering/Resolving]
  - Liver function test increased [Not Recovered/Not Resolved]
  - Myelodysplastic syndrome [Recovered/Resolved]

NARRATIVE: CASE EVENT DATE: 20180122
